FAERS Safety Report 24053626 (Version 2)
Quarter: 2024Q3

REPORT INFORMATION
  Report Type: Other
  Country: DE (occurrence: DE)
  Receive Date: 20240705
  Receipt Date: 20240822
  Transmission Date: 20241017
  Serious: Yes (Death)
  Sender: BIOCON
  Company Number: DE-PEI-CADR2024328024

PATIENT

DRUGS (1)
  1. TRASTUZUMAB [Suspect]
     Active Substance: TRASTUZUMAB
     Indication: Breast cancer
     Dosage: UNK,8 MG/KG = 512 MG ABS., DISCONTINUED AFTER ABOUT 2/3 OF THE DOSE
     Route: 042
     Dates: start: 20240507, end: 20240507

REACTIONS (4)
  - Cardio-respiratory arrest [Fatal]
  - Tremor [Fatal]
  - Restlessness [Fatal]
  - Hypersensitivity [Fatal]

NARRATIVE: CASE EVENT DATE: 20240507
